FAERS Safety Report 5527376-6 (Version None)
Quarter: 2007Q4

REPORT INFORMATION
  Report Type: 
  Country: None (occurrence: None)
  Receive Date: 20071123
  Receipt Date: 20071116
  Transmission Date: 20080405
  Serious: Yes (Hospitalization)
  Sender: FDA-Public Use
  Company Number: 163-20785-07111017

PATIENT
  Age: 89 Year
  Sex: Male

DRUGS (10)
  1. THALOMID [Suspect]
     Indication: AMYLOIDOSIS
     Dosage: 100 MG, 2 IN 1 D, ORAL
     Route: 048
     Dates: start: 20071011
  2. THALOMID [Suspect]
     Indication: GAMMOPATHY
     Dosage: 100 MG, 2 IN 1 D, ORAL
     Route: 048
     Dates: start: 20071011
  3. SPIRONOLACTONE [Concomitant]
  4. POTASSIUM CHLORIDE [Concomitant]
  5. FUROSEMIDE [Concomitant]
  6. ATENOLOL [Concomitant]
  7. FINASTERIDE [Concomitant]
  8. CAPTOPRIL [Concomitant]
  9. ARTIFICIAL TEARS (ARTIFICIAL TEARS) [Concomitant]
  10. DEXAMETHASONE TAB [Concomitant]

REACTIONS (1)
  - RENAL FAILURE ACUTE [None]
